FAERS Safety Report 6767871-5 (Version None)
Quarter: 2010Q2

REPORT INFORMATION
  Report Type: 
  Country: None (occurrence: None)
  Receive Date: 20100614
  Receipt Date: 20100604
  Transmission Date: 20101027
  Serious: Yes (Hospitalization, Other)
  Sender: FDA-Public Use
  Company Number: NO-ABBOTT-10P-122-0632784-00

PATIENT
  Sex: Male

DRUGS (4)
  1. HUMIRA [Suspect]
     Indication: CROHN'S DISEASE
     Route: 058
  2. HUMIRA [Suspect]
  3. HUMIRA [Suspect]
  4. PREDNISONE [Concomitant]
     Indication: CROHN'S DISEASE
     Dosage: HIGHEST MAINTAINED DOSE

REACTIONS (2)
  - EOSINOPHILIA [None]
  - INTERSTITIAL LUNG DISEASE [None]
